FAERS Safety Report 9422434 (Version 2)
Quarter: 2013Q3

REPORT INFORMATION
  Report Type: Spontaneous
  Country: IT (occurrence: IT)
  Receive Date: 20130726
  Receipt Date: 20130830
  Transmission Date: 20140515
  Serious: Yes (Disabling)
  Sender: FDA-Public Use
  Company Number: IT-SANOFI-AVENTIS-2013SA072915

PATIENT
  Age: 71 Year
  Sex: Male

DRUGS (6)
  1. ARAVA [Suspect]
     Indication: RHEUMATOID ARTHRITIS
     Route: 048
     Dates: start: 20100614, end: 20110501
  2. REMICADE [Suspect]
     Indication: RHEUMATOID ARTHRITIS
     Dosage: STRENGTH: 100 MG POWDER FOR CONCENTRATION FORINFUSION INTRAVENOUS 20 ML IV
     Route: 042
     Dates: start: 20130101, end: 20130312
  3. ROACTEMRA [Suspect]
     Indication: RHEUMATOID ARTHRITIS
     Dosage: DOSE:1 UNIT(S)
     Route: 042
     Dates: start: 20110601, end: 20110901
  4. SIMPONI [Suspect]
     Indication: RHEUMATOID ARTHRITIS
     Dosage: DOSE:1 UNIT(S)
     Route: 058
     Dates: start: 20110301, end: 20110501
  5. METHOTREXATE [Concomitant]
     Dates: start: 20090101, end: 20100101
  6. CHLOROQUINE [Concomitant]
     Dates: start: 20080101

REACTIONS (2)
  - Lupus-like syndrome [Not Recovered/Not Resolved]
  - Antiphospholipid syndrome [Not Recovered/Not Resolved]
